FAERS Safety Report 8346385-5 (Version None)
Quarter: 2012Q2

REPORT INFORMATION
  Report Type: 
  Country: None (occurrence: None)
  Receive Date: 20120509
  Receipt Date: 20120503
  Transmission Date: 20120825
  Serious: Yes (Hospitalization)
  Sender: FDA-Public Use
  Company Number: BR-US-EMD SERONO, INC.-7130524

PATIENT
  Sex: Male

DRUGS (1)
  1. REBIF [Suspect]
     Indication: MULTIPLE SCLEROSIS
     Dates: start: 20080801, end: 20120103

REACTIONS (4)
  - MYOCARDIAL INFARCTION [None]
  - CARDIAC ARREST [None]
  - MYALGIA [None]
  - BREAST PAIN [None]
